FAERS Safety Report 25309017 (Version 2)
Quarter: 2025Q3

REPORT INFORMATION
  Report Type: Spontaneous
  Country: US (occurrence: US)
  Receive Date: 20250513
  Receipt Date: 20250817
  Transmission Date: 20251020
  Serious: No
  Sender: SANOFI AVENTIS
  Company Number: US-SA-2025SA135775

PATIENT
  Sex: Female

DRUGS (3)
  1. DUPIXENT [Suspect]
     Active Substance: DUPILUMAB
     Indication: Dermatitis atopic
     Dosage: 300 MG, QOW
     Route: 058
     Dates: start: 202207
  2. HUMIRA [Concomitant]
     Active Substance: ADALIMUMAB
  3. ORENCIA [Concomitant]
     Active Substance: ABATACEPT
     Dates: end: 20250728

REACTIONS (3)
  - Pain [Unknown]
  - Dermatitis [Unknown]
  - Rash [Unknown]
